FAERS Safety Report 6475683-5 (Version None)
Quarter: 2009Q4

REPORT INFORMATION
  Report Type: 
  Country: None (occurrence: None)
  Receive Date: 20091204
  Receipt Date: 20091202
  Transmission Date: 20100525
  Serious: Yes (Hospitalization)
  Sender: FDA-Public Use
  Company Number: US-BRISTOL-MYERS SQUIBB COMPANY-14879241

PATIENT
  Sex: Male

DRUGS (4)
  1. ERBITUX [Suspect]
     Indication: COLORECTAL CANCER
     Dosage: TAKEN TWO CYCLES
     Dates: start: 20091109
  2. IRINOTECAN HCL [Concomitant]
     Indication: COLORECTAL CANCER
     Dates: start: 20091109
  3. FOLINIC ACID [Concomitant]
     Indication: COLORECTAL CANCER
     Dates: start: 20091109
  4. FLUOROURACIL [Concomitant]
     Indication: COLORECTAL CANCER
     Dates: start: 20091109

REACTIONS (1)
  - MYOCARDIAL INFARCTION [None]
